FAERS Safety Report 6911125-0 (Version None)
Quarter: 2010Q3

REPORT INFORMATION
  Report Type: 
  Country: None (occurrence: None)
  Receive Date: 20100806
  Receipt Date: 20100803
  Transmission Date: 20110219
  Serious: Yes (Hospitalization)
  Sender: FDA-Public Use
  Company Number: US-MERCK-0303USA00708

PATIENT
  Age: 68 Year
  Sex: Female

DRUGS (6)
  1. FOSAMAX [Suspect]
     Indication: OSTEOPENIA
     Route: 048
     Dates: start: 20000101, end: 20090101
  2. FOSAMAX [Suspect]
     Indication: OSTEOPOROSIS
     Route: 048
     Dates: start: 20000101, end: 20090101
  3. SYNTHROID [Concomitant]
     Route: 065
  4. COVERA-HS [Concomitant]
     Route: 065
  5. PROVERA [Concomitant]
     Route: 065
  6. PREMARIN [Concomitant]
     Route: 065

REACTIONS (5)
  - ALLERGY TO CHEMICALS [None]
  - BONE DENSITY DECREASED [None]
  - DRUG INEFFECTIVE [None]
  - MALABSORPTION [None]
  - TOOTH DISORDER [None]
